FAERS Safety Report 12461313 (Version 1)
Quarter: 2016Q2

REPORT INFORMATION
  Report Type: Spontaneous
  Country: US (occurrence: US)
  Receive Date: 20160613
  Receipt Date: 20160613
  Transmission Date: 20160815
  Serious: No
  Sender: FDA-Public Use
  Company Number: US-US WORLDMEDS, LLC-USW201507-000204

PATIENT
  Age: 71 Year
  Sex: Female
  Weight: 164.32 kg

DRUGS (4)
  1. ENABLEX [Concomitant]
     Active Substance: DARIFENACIN HYDROBROMIDE
     Indication: URINARY INCONTINENCE
  2. PREDNISOLONE. [Concomitant]
     Active Substance: PREDNISOLONE
     Indication: BURSITIS
  3. SINEMET [Concomitant]
     Active Substance: CARBIDOPA\LEVODOPA
     Indication: PARKINSONISM
  4. APOKYN [Suspect]
     Active Substance: APOMORPHINE HYDROCHLORIDE
     Indication: PARKINSONISM
     Route: 058

REACTIONS (3)
  - Peripheral swelling [Not Recovered/Not Resolved]
  - Pain in extremity [Not Recovered/Not Resolved]
  - Peripheral swelling [Not Recovered/Not Resolved]

NARRATIVE: CASE EVENT DATE: 20150727
